FAERS Safety Report 20828388 (Version 2)
Quarter: 2022Q3

REPORT INFORMATION
  Report Type: Spontaneous
  Country: CA (occurrence: CA)
  Receive Date: 20220513
  Receipt Date: 20220718
  Transmission Date: 20221026
  Serious: Yes (Death, Congenital Anomaly, Other)
  Sender: FDA-Public Use
  Company Number: CA-NOVARTISPH-NVSC2022CA111176

PATIENT
  Sex: Male
  Weight: 1.7 kg

DRUGS (1)
  1. HYDROCORTISONE [Suspect]
     Active Substance: HYDROCORTISONE
     Indication: Foetal exposure during pregnancy
     Dosage: MATERNAL EXPOSURE DURING PREGNANCY: UNK
     Route: 064

REACTIONS (5)
  - Congenital herpes simplex infection [Fatal]
  - Premature baby [Unknown]
  - Low birth weight baby [Unknown]
  - Adrenal insufficiency neonatal [Unknown]
  - Foetal exposure during pregnancy [Unknown]
